FAERS Safety Report 4976781-5 (Version None)
Quarter: 2006Q2

REPORT INFORMATION
  Report Type: 
  Country: None (occurrence: None)
  Receive Date: 20060419
  Receipt Date: 20060410
  Transmission Date: 20061013
  Serious: Yes (Other)
  Sender: FDA-Public Use
  Company Number: AU-GLAXOSMITHKLINE-B0420582A

PATIENT
  Age: 7 Year
  Sex: Female

DRUGS (6)
  1. FLUTICASONE PROPIONATE [Suspect]
     Indication: ASTHMA
     Route: 055
  2. PREDNISOLONE [Suspect]
     Indication: ASTHMA
     Route: 048
  3. CORTISONE ACETATE [Suspect]
     Indication: ASTHMA
     Route: 048
  4. SALMETEROL [Suspect]
     Indication: ASTHMA
     Dosage: 50MCG TWICE PER DAY
     Route: 055
  5. HYDROCORTISONE [Suspect]
     Route: 065
  6. NEDOCROMIL SODIUM [Concomitant]
     Indication: ASTHMA
     Dosage: 4MG TWICE PER DAY
     Route: 055

REACTIONS (5)
  - ADRENAL SUPPRESSION [None]
  - CATARACT [None]
  - CUSHINGOID [None]
  - GROWTH RETARDATION [None]
  - OSTEOPENIA [None]
